FAERS Safety Report 9602158 (Version 1)
Quarter: 2013Q4

REPORT INFORMATION
  Report Type: Spontaneous
  Country: US (occurrence: None)
  Receive Date: 20131004
  Receipt Date: 20131004
  Transmission Date: 20140711
  Serious: Yes (Other)
  Sender: FDA-Public Use
  Company Number: None

PATIENT
  Age: 60 Year
  Sex: Male
  Weight: 120 kg

DRUGS (1)
  1. PREGABALIN [Suspect]
     Dosage: MG
     Route: 048
     Dates: start: 20130903

REACTIONS (8)
  - Somnolence [None]
  - Sleep apnoea syndrome [None]
  - Condition aggravated [None]
  - Paraesthesia [None]
  - Depression [None]
  - Suicidal ideation [None]
  - Drug effect decreased [None]
  - Sedation [None]
